FAERS Safety Report 9797789 (Version 1)
Quarter: 2014Q1

REPORT INFORMATION
  Report Type: Spontaneous
  Country: NL (occurrence: NL)
  Receive Date: 20140106
  Receipt Date: 20140106
  Transmission Date: 20141002
  Serious: Yes (Death)
  Sender: FDA-Public Use
  Company Number: NL-AMGEN-NLDSP2013091729

PATIENT
  Age: 71 Year
  Sex: Male

DRUGS (16)
  1. XGEVA [Suspect]
     Indication: PROPHYLAXIS
     Dosage: UNK UNK, Q4WK
     Route: 065
     Dates: start: 20130822
  2. OMEPRAZOL                          /00661201/ [Concomitant]
     Dosage: 200 MG, UNK
  3. CALCICHEW D3 [Concomitant]
     Dosage: 500 MG/400 IET
  4. LOPERAMIDE HCL SANDOZ [Concomitant]
     Dosage: 2 MG, UNK
  5. FRAXIPARINE                        /01437701/ [Concomitant]
     Dosage: 5700 IE/0, 6 ML WW
  6. ACETYLSALICYLZUUR CARDIO [Concomitant]
     Dosage: 80 MG, UNK
  7. HYDROCOBAMINE [Concomitant]
     Dosage: 500 MUG/ML, AMP 2 ML
  8. FOLIUMZUUR [Concomitant]
     Dosage: 0.5 MG, UNK
  9. LOSARTAN/HYDROCHLOROTHIAZIDE [Concomitant]
     Dosage: 50/12.5 TFO
  10. CIALIS [Concomitant]
     Dosage: 20 MG, UNK
  11. TAMSULOSIN HCL [Concomitant]
     Dosage: 0.4 MG, UNK
  12. AVODART [Concomitant]
     Dosage: 0.5 MG, UNK
  13. MINOCYCLINE [Concomitant]
     Dosage: 100 MG, UNK
  14. TRAMADOL/PARACETAMOL TEVA [Concomitant]
     Dosage: 37.5/325 T
  15. SERETIDE DISCUS [Concomitant]
     Dosage: 50/500 MCG 60 D
  16. SPIRIVA [Concomitant]
     Dosage: 18 MUG, UNK

REACTIONS (1)
  - Death [Fatal]
